FAERS Safety Report 21447976 (Version 1)
Quarter: 2022Q4

REPORT INFORMATION
  Report Type: Report from Study
  Country: US (occurrence: US)
  Receive Date: 20221012
  Receipt Date: 20221012
  Transmission Date: 20230112
  Serious: Yes (Hospitalization, Other)
  Sender: FDA-Public Use
  Company Number: US-BRISTOL-MYERS SQUIBB COMPANY-2022-117171

PATIENT
  Age: 54 Year
  Sex: Male
  Weight: 136.07 kg

DRUGS (1)
  1. REVLIMID [Suspect]
     Active Substance: LENALIDOMIDE
     Indication: Plasma cell myeloma
     Dosage: 1 DAILY 21 DAYS AND 7 DAYS OFF, ONGOING
     Route: 048
     Dates: start: 20190930

REACTIONS (1)
  - Cardiac disorder [Unknown]
